FAERS Safety Report 20809577 (Version 1)
Quarter: 2022Q2

REPORT INFORMATION
  Report Type: Report from Study
  Country: US (occurrence: US)
  Receive Date: 20220510
  Receipt Date: 20220510
  Transmission Date: 20220720
  Serious: Yes (Other)
  Sender: FDA-Public Use
  Company Number: US-UPSHER-SMITH LABORATORIES, LLC-2022USL00273

PATIENT
  Age: 51 Year
  Sex: Female
  Weight: 86.168 kg

DRUGS (3)
  1. ZEMBRACE SYMTOUCH [Suspect]
     Active Substance: SUMATRIPTAN SUCCINATE
     Indication: Migraine
     Dosage: 3 MG, ONCE FOR MIGRAINE, MAY REPEAT DOSE IF NEEDED AFTER WAITING 1 HOUR. MAX 2 INJECTIONS IN 24 HOUR
     Route: 058
     Dates: start: 202204, end: 202204
  2. ZEMBRACE SYMTOUCH [Suspect]
     Active Substance: SUMATRIPTAN SUCCINATE
     Indication: Headache
  3. PREDNISONE [Concomitant]
     Active Substance: PREDNISONE

REACTIONS (3)
  - Dyspnoea [Recovered/Resolved]
  - Throat tightness [Recovered/Resolved]
  - Muscle tightness [Recovered/Resolved]

NARRATIVE: CASE EVENT DATE: 20220401
